FAERS Safety Report 25074720 (Version 1)
Quarter: 2025Q1

REPORT INFORMATION
  Report Type: Report from Study
  Country: US (occurrence: US)
  Receive Date: 20250313
  Receipt Date: 20250313
  Transmission Date: 20250409
  Serious: Yes (Life-Threatening, Hospitalization, Other)
  Sender: ALEXION PHARMACEUTICALS
  Company Number: US-AstraZeneca-CH-00826013A

PATIENT

DRUGS (1)
  1. DAPAGLIFLOZIN [Suspect]
     Active Substance: DAPAGLIFLOZIN
     Route: 065

REACTIONS (8)
  - Cerebrovascular accident [Unknown]
  - Fall [Unknown]
  - Fracture [Unknown]
  - Cataract [Unknown]
  - Dementia [Unknown]
  - Dehydration [Unknown]
  - Vertigo [Unknown]
  - Dizziness [Unknown]
